FAERS Safety Report 26198181 (Version 1)
Quarter: 2025Q4

REPORT INFORMATION
  Report Type: Spontaneous
  Country: CN (occurrence: CN)
  Receive Date: 20251224
  Receipt Date: 20251224
  Transmission Date: 20260118
  Serious: Yes (Other)
  Sender: PFIZER
  Company Number: CN-PFIZER INC-PV202500147954

PATIENT
  Age: 12 Year
  Sex: Female
  Weight: 30.5 kg

DRUGS (2)
  1. CYTARABINE [Suspect]
     Active Substance: CYTARABINE
     Indication: Lymphoma
     Dosage: 80 MG, 1X/DAY
     Route: 041
     Dates: start: 20251128, end: 20251201
  2. CYCLOPHOSPHAMIDE [Suspect]
     Active Substance: CYCLOPHOSPHAMIDE
     Indication: Lymphoma
     Dosage: 1100 MG, 1X/DAY
     Route: 041
     Dates: start: 20251126, end: 20251126

REACTIONS (1)
  - Drug-induced liver injury [Recovering/Resolving]

NARRATIVE: CASE EVENT DATE: 20251201
